FAERS Safety Report 24415755 (Version 1)
Quarter: 2024Q4

REPORT INFORMATION
  Report Type: Spontaneous
  Country: IT (occurrence: IT)
  Receive Date: 20241009
  Receipt Date: 20241009
  Transmission Date: 20250115
  Serious: Yes (Other)
  Sender: RANBAXY
  Company Number: IT-SUN PHARMACEUTICAL INDUSTRIES LTD-2024R1-471937

PATIENT
  Age: 30 Year
  Sex: Female

DRUGS (1)
  1. VALACYCLOVIR [Suspect]
     Active Substance: VALACYCLOVIR HYDROCHLORIDE
     Indication: Cytomegalovirus infection
     Dosage: 2 GRAM, QID
     Route: 065

REACTIONS (3)
  - Hydronephrosis [Unknown]
  - Exposure during pregnancy [Unknown]
  - Oligohydramnios [Unknown]
